FAERS Safety Report 12719345 (Version 3)
Quarter: 2016Q4

REPORT INFORMATION
  Report Type: Report from Study
  Country: US (occurrence: US)
  Receive Date: 20160907
  Receipt Date: 20161005
  Transmission Date: 20170207
  Serious: Yes (Other)
  Sender: FDA-Public Use
  Company Number: PHEH2016US022455

PATIENT
  Sex: Female

DRUGS (1)
  1. IMATINIB [Suspect]
     Active Substance: IMATINIB
     Indication: PRODUCT USED FOR UNKNOWN INDICATION
     Route: 065
     Dates: start: 20150201

REACTIONS (5)
  - Teeth brittle [Unknown]
  - Tooth disorder [Unknown]
  - Eye abscess [Unknown]
  - Swelling [Unknown]
  - Tongue disorder [Unknown]
